FAERS Safety Report 9895362 (Version 1)
Quarter: 2014Q1

REPORT INFORMATION
  Report Type: Spontaneous
  Country: US (occurrence: US)
  Receive Date: 20140213
  Receipt Date: 20140213
  Transmission Date: 20141002
  Serious: No
  Sender: FDA-Public Use
  Company Number: US-BRISTOL-MYERS SQUIBB COMPANY-19389576

PATIENT
  Age: 50 Year
  Sex: Female
  Weight: 61.22 kg

DRUGS (7)
  1. ABATACEPT SUBQ INJECTION 125MG/ML [Suspect]
     Dosage: 4PACKS
     Route: 058
  2. LIPITOR [Concomitant]
     Dosage: TAB
  3. LEFLUNOMIDE [Concomitant]
     Dosage: TABS
  4. ETODOLAC [Concomitant]
     Dosage: TABS
  5. LOSARTAN POTASSIUM + HCTZ [Concomitant]
     Dosage: 1DF: 100-12.5 UNITS NOS?TABS
  6. AMITRIPTYLINE [Concomitant]
     Dosage: TABS
  7. LORTAB [Concomitant]
     Dosage: 1DF: 7.5 UNITS NOS?TABS

REACTIONS (2)
  - Hypersensitivity [Unknown]
  - Psoriasis [Unknown]
